FAERS Safety Report 22145714 (Version 1)
Quarter: 2023Q1

REPORT INFORMATION
  Report Type: Spontaneous
  Country: CL (occurrence: CL)
  Receive Date: 20230328
  Receipt Date: 20230328
  Transmission Date: 20230417
  Serious: Yes (Hospitalization, Other)
  Sender: FDA-Public Use
  Company Number: CL-GLAXOSMITHKLINE-CL2023AMR045016

PATIENT

DRUGS (1)
  1. NUCALA [Suspect]
     Active Substance: MEPOLIZUMAB
     Indication: Product used for unknown indication
     Dosage: UNK
     Dates: start: 20230316

REACTIONS (3)
  - Respiratory failure [Unknown]
  - Bronchospasm [Unknown]
  - Dependence on oxygen therapy [Unknown]
